FAERS Safety Report 21434160 (Version 1)
Quarter: 2022Q4

REPORT INFORMATION
  Report Type: Spontaneous
  Country: CN (occurrence: CN)
  Receive Date: 20221010
  Receipt Date: 20221010
  Transmission Date: 20230112
  Serious: Yes (Other)
  Sender: FDA-Public Use
  Company Number: CN-TAKEDA-2022TUS071334

PATIENT
  Age: 70 Year
  Sex: Female
  Weight: 43 kg

DRUGS (1)
  1. ALBUMIN HUMAN [Suspect]
     Active Substance: ALBUMIN HUMAN
     Indication: Hypoproteinaemia
     Dosage: 20 GRAM, QD
     Route: 041
     Dates: start: 20220929, end: 20220929

REACTIONS (2)
  - Drug hypersensitivity [Recovering/Resolving]
  - Laryngeal oedema [Recovering/Resolving]

NARRATIVE: CASE EVENT DATE: 20220929
